FAERS Safety Report 4801505-1 (Version None)
Quarter: 2005Q4

REPORT INFORMATION
  Report Type: 
  Country: None (occurrence: None)
  Receive Date: 20051011
  Receipt Date: 20051003
  Transmission Date: 20060501
  Serious: Yes (Hospitalization)
  Sender: FDA-Public Use
  Company Number: 2005-09-0926

PATIENT
  Age: 46 Year
  Sex: Female
  Weight: 63.9572 kg

DRUGS (23)
  1. PEG-INTRON [Suspect]
     Indication: HEPATITIS C
     Dosage: SUBCUTANEOUS
     Route: 058
     Dates: start: 20050501
  2. PHENERGAN [Suspect]
     Indication: NAUSEA
     Dosage: 25 MG Q6H PRN ORAL
     Route: 048
     Dates: start: 20050823, end: 20050913
  3. PHENERGAN [Suspect]
     Indication: VOMITING
     Dosage: 25 MG Q6H PRN ORAL
     Route: 048
     Dates: start: 20050823, end: 20050913
  4. FLUOXETINE [Concomitant]
  5. OMEPRAZOLE [Concomitant]
  6. ENALAPRIL MALEATE [Concomitant]
  7. DICYCLOMIDE HYDROCHLORIDE CAPSULES [Concomitant]
  8. ERGOTAMINE TABLETS [Concomitant]
  9. AMLODIPINE TABLETS [Concomitant]
  10. TRAZODONE HCL [Concomitant]
  11. DOXEPIN CAPSULES [Concomitant]
  12. DIAZEPAM [Concomitant]
  13. TRAMADOL HYDROCHLORIDE TABLETS [Concomitant]
  14. PROPOXYPHENE HYDROCHLORIDE CAPSULES [Concomitant]
  15. MORPHINE SULFATE TABLETS [Concomitant]
  16. NORTRIPTYLINE HCL [Concomitant]
  17. RANITIDINE [Concomitant]
  18. TRIAMCINOLONE [Concomitant]
  19. MEGESTROL ACETATE [Concomitant]
  20. METHADONE HYDROCHLORIDE TABLETS [Concomitant]
  21. POTASSIUM CHLORIDE [Concomitant]
  22. CEPHAXLEN CAPSULES [Concomitant]
  23. PROMETHAZINE SUPPOSITORIES [Concomitant]

REACTIONS (13)
  - ARTHRALGIA [None]
  - BLOOD UREA DECREASED [None]
  - CHEST PAIN [None]
  - DEHYDRATION [None]
  - DYSPNOEA [None]
  - DYSTONIA [None]
  - HEART RATE INCREASED [None]
  - HYPERTENSION [None]
  - HYPOKALAEMIA [None]
  - MUSCLE SPASMS [None]
  - NAUSEA [None]
  - RESPIRATORY RATE INCREASED [None]
  - VOMITING [None]
